FAERS Safety Report 6060693-2 (Version None)
Quarter: 2009Q1

REPORT INFORMATION
  Report Type: 
  Country: None (occurrence: None)
  Receive Date: 20090202
  Receipt Date: 20090121
  Transmission Date: 20090719
  Serious: Yes (Hospitalization)
  Sender: FDA-Public Use
  Company Number: SE-PFIZER INC-2009159281

PATIENT

DRUGS (12)
  1. SALAZOPYRIN [Suspect]
     Indication: RHEUMATOID ARTHRITIS
     Route: 048
     Dates: start: 20080707, end: 20080722
  2. BISOPROLOL [Concomitant]
  3. COZAAR [Concomitant]
     Route: 048
  4. KALCIPOS-D [Concomitant]
  5. OMEPRAZOLE [Concomitant]
  6. SIMVASTATIN [Concomitant]
  7. INOLAXOL [Concomitant]
  8. ALVEDON [Concomitant]
     Route: 048
  9. BEHEPAN [Concomitant]
     Route: 048
  10. LASIX [Concomitant]
     Route: 048
  11. TROMBYL [Concomitant]
     Route: 048
  12. LEVOTHYROXINE SODIUM [Concomitant]
     Route: 048

REACTIONS (1)
  - ENCEPHALITIS [None]
